FAERS Safety Report 6309254-8 (Version None)
Quarter: 2009Q3

REPORT INFORMATION
  Report Type: 
  Country: None (occurrence: None)
  Receive Date: 20090814
  Receipt Date: 20090804
  Transmission Date: 20100115
  Serious: Yes (Hospitalization, Other)
  Sender: FDA-Public Use
  Company Number: US-CELGENEUS-163-20785-09071751

PATIENT
  Sex: Male

DRUGS (2)
  1. THALOMID [Suspect]
     Indication: MULTIPLE MYELOMA
     Route: 048
     Dates: start: 20071001
  2. THALOMID [Suspect]
     Route: 048
     Dates: start: 20090501

REACTIONS (2)
  - CARDIAC STRESS TEST ABNORMAL [None]
  - CORONARY ARTERY STENOSIS [None]
